FAERS Safety Report 6937686-3 (Version None)
Quarter: 2010Q3

REPORT INFORMATION
  Report Type: 
  Country: None (occurrence: None)
  Receive Date: 20100820
  Receipt Date: 20100820
  Transmission Date: 20110219
  Serious: Yes (Other)
  Sender: FDA-Public Use
  Company Number: None

PATIENT
  Age: 39 Year
  Sex: Female
  Weight: 50.8029 kg

DRUGS (1)
  1. TOPAMAX [Suspect]
     Indication: MIGRAINE
     Dosage: 100 MG EVERY DAY PO
     Route: 048
     Dates: start: 20070604, end: 20100817

REACTIONS (16)
  - ALOPECIA [None]
  - APATHY [None]
  - BALANCE DISORDER [None]
  - FALL [None]
  - FATIGUE [None]
  - FLAT AFFECT [None]
  - GASTROOESOPHAGEAL REFLUX DISEASE [None]
  - HAIR TEXTURE ABNORMAL [None]
  - HALLUCINATION, VISUAL [None]
  - HYPERSOMNIA [None]
  - MIGRAINE [None]
  - MOTOR DYSFUNCTION [None]
  - NAIL DISORDER [None]
  - PSYCHOTIC DISORDER [None]
  - TENDONITIS [None]
  - UNEVALUABLE EVENT [None]
